FAERS Safety Report 24279439 (Version 1)
Quarter: 2024Q3

REPORT INFORMATION
  Report Type: Spontaneous
  Country: US (occurrence: None)
  Receive Date: 20240903
  Receipt Date: 20240903
  Transmission Date: 20241017
  Serious: Yes (Other)
  Sender: NODEN PHARMA
  Company Number: US-Noden Pharma DAC-NOD202408-000116

PATIENT
  Age: 46 Year
  Sex: Male

DRUGS (1)
  1. COCAINE HYDROCHLORIDE [Suspect]
     Active Substance: COCAINE HYDROCHLORIDE
     Indication: Product used for unknown indication
     Dosage: UNKNOWN

REACTIONS (2)
  - Optic ischaemic neuropathy [Recovering/Resolving]
  - Blindness [Not Recovered/Not Resolved]
